FAERS Safety Report 18636556 (Version 1)
Quarter: 2020Q4

REPORT INFORMATION
  Report Type: Spontaneous
  Country: US (occurrence: US)
  Receive Date: 20201218
  Receipt Date: 20201218
  Transmission Date: 20210114
  Serious: Yes (Other)
  Sender: FDA-Public Use
  Company Number: US-PFIZER INC-2020497868

PATIENT
  Age: 80 Year
  Sex: Female

DRUGS (4)
  1. LYRICA [Suspect]
     Active Substance: PREGABALIN
     Dosage: 200 MG, DAILY (SIG: 1 CAPSULE 1 IN AM 1 IN AFTERNOON 2 AT NIGHT 90 DAYS)
     Route: 048
  2. CARBAMAZEPINE. [Concomitant]
     Active Substance: CARBAMAZEPINE
     Dosage: UNK
  3. LYRICA [Suspect]
     Active Substance: PREGABALIN
     Dosage: 50MG TID PRN (THREE TIMES A DAY AS NEEDED)
  4. LYRICA [Suspect]
     Active Substance: PREGABALIN
     Dosage: 175 MG, DAILY (50 MG BID (TWICE A DAY) AND 75 MG AT BEDTIME)

REACTIONS (5)
  - Headache [Unknown]
  - Facial pain [Recovering/Resolving]
  - Crepitations [Unknown]
  - Spinal osteoarthritis [Unknown]
  - Intentional product misuse [Unknown]
